FAERS Safety Report 4741548-X (Version None)
Quarter: 2005Q3

REPORT INFORMATION
  Report Type: 
  Country: None (occurrence: None)
  Receive Date: 20050808
  Receipt Date: 20050725
  Transmission Date: 20060218
  Serious: Yes (Death)
  Sender: FDA-Public Use
  Company Number: TNZCA200500068

PATIENT
  Age: 76 Year
  Sex: Male
  Weight: 70.3075 kg

DRUGS (2)
  1. INNOHEP [Suspect]
     Indication: DEEP VEIN THROMBOSIS
     Dosage: 175 IU/KG (ONCE DAILY), SUBCUTANEOUS
     Route: 058
     Dates: start: 19990311, end: 19990315
  2. WARFARIN SODIUM (WARFARIN SODIUM) (TABLETS) [Concomitant]

REACTIONS (6)
  - CEREBROVASCULAR DISORDER [None]
  - FALL [None]
  - HAEMORRHAGE INTRACRANIAL [None]
  - HEAD INJURY [None]
  - HUMERUS FRACTURE [None]
  - LOSS OF CONSCIOUSNESS [None]
